FAERS Safety Report 15824056 (Version 2)
Quarter: 2019Q1

REPORT INFORMATION
  Report Type: Spontaneous
  Country: US (occurrence: US)
  Receive Date: 20190114
  Receipt Date: 20190212
  Transmission Date: 20190417
  Serious: Yes (Hospitalization, Other)
  Sender: FDA-Public Use
  Company Number: US-AMGEN-USASP2019005273

PATIENT
  Age: 67 Year
  Sex: Male
  Weight: 94.33 kg

DRUGS (2)
  1. AIMOVIG [Suspect]
     Active Substance: ERENUMAB-AOOE
     Indication: MIGRAINE
     Dosage: 70 MG, UNK
     Route: 065
     Dates: start: 20180920, end: 20180920
  2. AIMOVIG [Suspect]
     Active Substance: ERENUMAB-AOOE
     Dosage: 140 MG, UNK
     Route: 065
     Dates: start: 20181020, end: 20181221

REACTIONS (2)
  - Therapy non-responder [Unknown]
  - Haemorrhagic pneumonia [Recovering/Resolving]

NARRATIVE: CASE EVENT DATE: 2018
